FAERS Safety Report 25271020 (Version 1)
Quarter: 2025Q2

REPORT INFORMATION
  Report Type: Spontaneous
  Country: US (occurrence: US)
  Receive Date: 20250506
  Receipt Date: 20250506
  Transmission Date: 20250717
  Serious: No
  Sender: TIANJIN TIANYAO PHARMACEUTICALS CO.,LTD.
  Company Number: US-tianyaoyaoye-2024-tjpc-000001

PATIENT
  Age: 65 Year
  Sex: Female
  Weight: 68 kg

DRUGS (1)
  1. METHYLPREDNISOLONE [Suspect]
     Active Substance: METHYLPREDNISOLONE
     Indication: Abdominal rigidity
     Route: 048
     Dates: start: 20241004, end: 20241008

REACTIONS (3)
  - Anxiety [Recovered/Resolved]
  - Initial insomnia [Recovered/Resolved]
  - Product use in unapproved indication [Recovered/Resolved]

NARRATIVE: CASE EVENT DATE: 20241004
